FAERS Safety Report 8914282 (Version 1)
Quarter: 2012Q4

REPORT INFORMATION
  Report Type: 
  Country: US (occurrence: US)
  Receive Date: 20121119
  Receipt Date: 20121119
  Transmission Date: 20130627
  Serious: Yes (Other)
  Sender: FDA-Public Use
  Company Number: US-ELI_LILLY_AND_COMPANY-US201211002428

PATIENT
  Age: 50 Year
  Sex: Female

DRUGS (5)
  1. CYMBALTA [Suspect]
     Indication: DEPRESSION
     Dosage: 60 mg, UNK
     Dates: start: 2009, end: 20121106
  2. CYMBALTA [Suspect]
     Dosage: 30 mg, qd
  3. CYMBALTA [Suspect]
     Dosage: 30 mg, qod
  4. ZOCOR [Concomitant]
     Dosage: 20 mg, UNK
  5. PREMARIN [Concomitant]
     Dosage: 0.3 mg, UNK

REACTIONS (1)
  - Dermatitis exfoliative [Unknown]
